FAERS Safety Report 5830494-6 (Version None)
Quarter: 2008Q3

REPORT INFORMATION
  Report Type: 
  Country: None (occurrence: None)
  Receive Date: 20080801
  Receipt Date: 20070614
  Transmission Date: 20090109
  Serious: Yes (Other)
  Sender: FDA-Public Use
  Company Number: US-BRISTOL-MYERS SQUIBB COMPANY-13814884

PATIENT
  Age: 89 Year
  Sex: Female
  Weight: 63 kg

DRUGS (10)
  1. COUMADIN [Suspect]
     Indication: ATRIAL FIBRILLATION
  2. WARFARIN SODIUM [Suspect]
     Indication: ATRIAL FIBRILLATION
  3. COREG [Concomitant]
  4. LASIX [Concomitant]
  5. IMDUR [Concomitant]
  6. SYNTHROID [Concomitant]
  7. COZAAR [Concomitant]
  8. ALDACTONE [Concomitant]
  9. POTASSIUM CHLORIDE [Concomitant]
  10. LIPITOR [Concomitant]

REACTIONS (1)
  - INTERNATIONAL NORMALISED RATIO FLUCTUATION [None]
